FAERS Safety Report 4542918-5 (Version None)
Quarter: 2004Q4

REPORT INFORMATION
  Report Type: 
  Country: None (occurrence: None)
  Receive Date: 20041229
  Receipt Date: 20041216
  Transmission Date: 20050328
  Serious: Yes (Hospitalization)
  Sender: FDA-Public Use
  Company Number: 2004115064

PATIENT
  Age: 59 Year
  Sex: Female
  Weight: 104.3273 kg

DRUGS (1)
  1. ALPRAZOLAM [Suspect]
     Indication: ANXIETY
     Dosage: 8 MG (4 MG, BID), ORAL
     Route: 048
     Dates: start: 19990614, end: 20041210

REACTIONS (7)
  - CARDIAC DISORDER [None]
  - DRUG DEPENDENCE [None]
  - DRUG WITHDRAWAL SYNDROME [None]
  - LYMPHADENOPATHY [None]
  - MUSCLE SPASMS [None]
  - PANIC ATTACK [None]
  - TENSION HEADACHE [None]
